FAERS Safety Report 4626262-3 (Version None)
Quarter: 2005Q2

REPORT INFORMATION
  Report Type: 
  Country: None (occurrence: None)
  Receive Date: 20050404
  Receipt Date: 20050210
  Transmission Date: 20051028
  Serious: Yes (Other)
  Sender: FDA-Public Use
  Company Number: FR-ROCHE-394876

PATIENT
  Age: 65 Year
  Sex: Male

DRUGS (12)
  1. LOXEN LP [Suspect]
     Indication: ESSENTIAL HYPERTENSION
     Dosage: REPORTED AS BEING LESS THAN A MONTH.
     Route: 048
     Dates: start: 20041205, end: 20041224
  2. TENORMIN [Interacting]
     Indication: ESSENTIAL HYPERTENSION
     Dosage: REPORTED AS BEING LESS THAN A MONTH.
     Route: 048
     Dates: start: 20041205, end: 20041224
  3. EUPRESSYL [Interacting]
     Indication: ESSENTIAL HYPERTENSION
     Dosage: REPORTED AS BEING LESS THAN A MONTH.
     Route: 048
     Dates: start: 20041205, end: 20041224
  4. ATACAND [Interacting]
     Indication: ESSENTIAL HYPERTENSION
     Dosage: REPORTED AS BEING LESS THAN A MONTH.
     Route: 048
     Dates: start: 20041205, end: 20041224
  5. BUFLOMEDIL [Concomitant]
     Dosage: REPORTED AS BEING LESS THAN A MONTH.
     Dates: start: 20041215, end: 20041215
  6. SERENOA REPENS [Concomitant]
     Dosage: REPORTED AS BEING LESS THAN A MONTH.
     Dates: start: 20041215, end: 20041215
  7. SIMVASTATIN [Concomitant]
     Dosage: REPORTED AS BEING A MONTH.
     Dates: start: 20041215, end: 20050113
  8. OMEPRAZOLE [Concomitant]
  9. GALENIC /DEXTROPROPOXYPHENE/PARACETAMOL/ [Concomitant]
  10. DILTIAZEM HYDROCHLORIDE [Concomitant]
     Dates: start: 20041115
  11. MOLSIDOMINE [Concomitant]
     Dates: start: 20041115
  12. DIURETICS [Concomitant]

REACTIONS (5)
  - BLOOD CREATININE INCREASED [None]
  - BLOOD UREA INCREASED [None]
  - DRUG INTERACTION [None]
  - FATIGUE [None]
  - HYPOTENSION [None]
